FAERS Safety Report 9330156 (Version 1)
Quarter: 2013Q2

REPORT INFORMATION
  Report Type: Spontaneous
  Country: US (occurrence: US)
  Receive Date: 20130604
  Receipt Date: 20130604
  Transmission Date: 20140414
  Serious: No
  Sender: FDA-Public Use
  Company Number: US-ASTRAZENECA-2013SE36578

PATIENT
  Sex: Female

DRUGS (1)
  1. CAPRELSA [Suspect]
     Indication: MEDULLARY THYROID CANCER
     Route: 048
     Dates: end: 2013

REACTIONS (2)
  - Dermatitis acneiform [Not Recovered/Not Resolved]
  - Liver function test abnormal [Unknown]
